FAERS Safety Report 15894490 (Version 1)
Quarter: 2019Q1

REPORT INFORMATION
  Report Type: Report from Study
  Country: None (occurrence: BR)
  Receive Date: 20190131
  Receipt Date: 20190131
  Transmission Date: 20190417
  Serious: Yes (Death)
  Sender: FDA-Public Use
  Company Number: BR-ABBVIE-19K-020-2645701-00

PATIENT
  Sex: Female

DRUGS (2)
  1. HUMIRA [Suspect]
     Active Substance: ADALIMUMAB
     Indication: CROHN^S DISEASE
     Dosage: LOADING DOSE??WEEK 0
     Route: 058
     Dates: start: 20190110, end: 20190110
  2. HUMIRA [Suspect]
     Active Substance: ADALIMUMAB
     Dosage: LOADING DOSE ??WEEK 2
     Route: 058
     Dates: start: 20190124, end: 20190124

REACTIONS (2)
  - Crohn^s disease [Fatal]
  - Pulmonary embolism [Fatal]
